FAERS Safety Report 9757947 (Version 1)
Quarter: 2013Q4

REPORT INFORMATION
  Report Type: Spontaneous
  Country: US (occurrence: US)
  Receive Date: 20131216
  Receipt Date: 20131216
  Transmission Date: 20140711
  Serious: No
  Sender: FDA-Public Use
  Company Number: US-TEVA-409899USA

PATIENT
  Age: 29 Year
  Sex: Female
  Weight: 52.66 kg

DRUGS (3)
  1. PARAGARD 380A [Suspect]
     Indication: CONTRACEPTION
     Route: 015
     Dates: start: 201201
  2. ZOLOFT [Concomitant]
     Indication: ANXIETY
     Dosage: DAILY
  3. ATIVAN [Concomitant]
     Indication: FEELING OF RELAXATION
     Dosage: AS NEEDED

REACTIONS (4)
  - Abdominal pain [Not Recovered/Not Resolved]
  - Device expulsion [Not Recovered/Not Resolved]
  - Menorrhagia [Recovered/Resolved]
  - Metrorrhagia [Not Recovered/Not Resolved]
